FAERS Safety Report 6224967-4 (Version None)
Quarter: 2009Q2

REPORT INFORMATION
  Report Type: 
  Country: None (occurrence: None)
  Receive Date: 20090612
  Receipt Date: 20090402
  Transmission Date: 20091009
  Serious: No
  Sender: FDA-Public Use
  Company Number: US-ABBOTT-09P-163-0566416-00

PATIENT
  Sex: Male
  Weight: 83.99 kg

DRUGS (5)
  1. HUMIRA [Suspect]
     Indication: RHEUMATOID ARTHRITIS
     Dates: start: 20070101, end: 20080101
  2. HUMIRA [Suspect]
     Route: 058
     Dates: start: 20080101
  3. MORPHINE PUMP [Concomitant]
     Indication: SURGERY
     Dosage: NOT REPORTED
  4. MORPHINE PUMP [Concomitant]
     Indication: ROAD TRAFFIC ACCIDENT
  5. TERIPARATIDE [Concomitant]
     Indication: RHEUMATOID ARTHRITIS
     Dosage: FORTEO

REACTIONS (5)
  - ARTHRALGIA [None]
  - INJECTION SITE HAEMATOMA [None]
  - INJECTION SITE HAEMORRHAGE [None]
  - INJECTION SITE PAIN [None]
  - JOINT SWELLING [None]
